FAERS Safety Report 19236418 (Version 5)
Quarter: 2021Q3

REPORT INFORMATION
  Report Type: Spontaneous
  Country: US (occurrence: US)
  Receive Date: 20210510
  Receipt Date: 20210903
  Transmission Date: 20211014
  Serious: Yes (Other)
  Sender: FDA-Public Use
  Company Number: US-GLAXOSMITHKLINE-US2021100170

PATIENT
  Age: 58 Year
  Sex: Female

DRUGS (5)
  1. ZEJULA [Suspect]
     Active Substance: NIRAPARIB
     Dosage: 200 MG, QD
     Route: 048
     Dates: start: 20210517
  2. ZEJULA [Suspect]
     Active Substance: NIRAPARIB
     Dosage: 200 MG, QD
     Route: 048
  3. ZEJULA [Suspect]
     Active Substance: NIRAPARIB
     Indication: OVARIAN CANCER
     Dosage: 200 MG, QD
     Route: 048
     Dates: start: 20210424
  4. ZEJULA [Suspect]
     Active Substance: NIRAPARIB
     Dosage: 200 MG, QD
     Route: 048
  5. ZEJULA [Suspect]
     Active Substance: NIRAPARIB
     Dosage: 100 MG, QD

REACTIONS (15)
  - Fatigue [Not Recovered/Not Resolved]
  - Arthralgia [Not Recovered/Not Resolved]
  - Contusion [Unknown]
  - Pain [Recovered/Resolved with Sequelae]
  - Lethargy [Unknown]
  - Inflammation [Unknown]
  - Myalgia [Not Recovered/Not Resolved]
  - Gene mutation [Unknown]
  - Back pain [Unknown]
  - Cardiovascular disorder [Unknown]
  - Fall [Unknown]
  - Condition aggravated [Unknown]
  - Neck pain [Unknown]
  - Limb crushing injury [Unknown]
  - Physical disability [Unknown]

NARRATIVE: CASE EVENT DATE: 202108
